FAERS Safety Report 15473190 (Version 1)
Quarter: 2018Q4

REPORT INFORMATION
  Report Type: Spontaneous
  Country: US (occurrence: US)
  Receive Date: 20181008
  Receipt Date: 20181008
  Transmission Date: 20190205
  Serious: Yes (Death, Other)
  Sender: FDA-Public Use
  Company Number: US-ROCHE-463708

PATIENT
  Age: 69 Year
  Sex: Female

DRUGS (5)
  1. RITUXAN [Suspect]
     Active Substance: RITUXIMAB
     Indication: THROMBOTIC THROMBOCYTOPENIC PURPURA
     Dosage: REPORTED AS 2 DOSES OF 375 MG/M2 WEEKLY
     Route: 042
  2. METHYLPREDNISOLONE. [Suspect]
     Active Substance: METHYLPREDNISOLONE
     Indication: CONNECTIVE TISSUE DISORDER
     Dosage: REPORTED AS HIGH DOSE
     Route: 042
  3. PLASMA EXCHANGE [Concomitant]
     Active Substance: ALBUMIN HUMAN
  4. RITUXAN [Suspect]
     Active Substance: RITUXIMAB
     Indication: CONNECTIVE TISSUE DISORDER
  5. HEPARIN [Suspect]
     Active Substance: HEPARIN SODIUM
     Indication: PRODUCT USED FOR UNKNOWN INDICATION
     Route: 042

REACTIONS (4)
  - Off label use [Fatal]
  - Intentional product use issue [Fatal]
  - Device related sepsis [Fatal]
  - Heparin-induced thrombocytopenia [Recovering/Resolving]
